FAERS Safety Report 23476973 (Version 2)
Quarter: 2024Q2

REPORT INFORMATION
  Report Type: Report from Study
  Country: CA (occurrence: CA)
  Receive Date: 20240204
  Receipt Date: 20240603
  Transmission Date: 20240716
  Serious: Yes (Other)
  Sender: FDA-Public Use
  Company Number: CA-SANDOZ-SDZ2024CA010392

PATIENT
  Sex: Female

DRUGS (1)
  1. HYRIMOZ [Suspect]
     Active Substance: ADALIMUMAB-ADAZ
     Indication: Colitis ulcerative
     Dosage: 160MG WEEK 0, 80MG WEEK 2, THEN 40MG Q 2 WEEKS;EVERY TWO WEEKS
     Route: 058
     Dates: start: 20220101

REACTIONS (2)
  - Haematochezia [Unknown]
  - Off label use [Unknown]
